FAERS Safety Report 5102851-7 (Version None)
Quarter: 2006Q3

REPORT INFORMATION
  Report Type: 
  Country: None (occurrence: None)
  Receive Date: 20060907
  Receipt Date: 20060825
  Transmission Date: 20061208
  Serious: Yes (Hospitalization, Disabling)
  Sender: FDA-Public Use
  Company Number: FABR-10664

PATIENT
  Age: 48 Year
  Sex: Female
  Weight: 50 kg

DRUGS (5)
  1. FABRAZYME [Suspect]
     Indication: FABRY'S DISEASE
     Dosage: 35 MG Q2WKS IV
     Route: 042
     Dates: start: 20031022
  2. CANDESARTAN CILEXETIL [Concomitant]
  3. AMLODIPINE BESYLATE [Concomitant]
  4. TEMOCAPRIL HYDROCHLORIDE [Concomitant]
  5. DOXAZOSIN MESYLATE [Concomitant]

REACTIONS (19)
  - ANAEMIA [None]
  - AZOTAEMIA [None]
  - BLOOD BICARBONATE DECREASED [None]
  - BLOOD CALCIUM DECREASED [None]
  - BLOOD CREATININE INCREASED [None]
  - BLOOD PH DECREASED [None]
  - BLOOD PHOSPHORUS INCREASED [None]
  - BLOOD POTASSIUM INCREASED [None]
  - BLOOD SODIUM DECREASED [None]
  - BLOOD UREA INCREASED [None]
  - CONDITION AGGRAVATED [None]
  - ELECTROLYTE IMBALANCE [None]
  - HAEMODIALYSIS [None]
  - MALAISE [None]
  - METABOLIC ACIDOSIS [None]
  - MUSCULAR WEAKNESS [None]
  - NAUSEA [None]
  - RENAL IMPAIRMENT [None]
  - VOMITING [None]
